FAERS Safety Report 6848296-0 (Version None)
Quarter: 2010Q3

REPORT INFORMATION
  Report Type: 
  Country: None (occurrence: None)
  Receive Date: 20100716
  Receipt Date: 20100706
  Transmission Date: 20110219
  Serious: Yes (Hospitalization)
  Sender: FDA-Public Use
  Company Number: US-ROCHE-707526

PATIENT
  Sex: Male

DRUGS (13)
  1. MYCOPHENOLATE MOFETIL [Suspect]
     Dosage: FORM: PER PROTOCOL.
     Route: 048
     Dates: start: 20081020
  2. BELATACEPT [Suspect]
     Dosage: BLINDED DOSE
     Route: 042
     Dates: start: 20081021
  3. PREDNISONE [Suspect]
     Route: 048
  4. VALCYTE [Concomitant]
  5. TRIAMCINOLONE [Concomitant]
  6. PENTAMIDINE ISETHIONATE [Concomitant]
  7. OXYCONTIN [Concomitant]
  8. OMEPRAZOLE [Concomitant]
  9. NYSTATIN [Concomitant]
     Dosage: DRUG: NYSTATIN ORAL SUSPENSION
     Route: 048
  10. NOVOLOG [Concomitant]
  11. NORVASC [Concomitant]
  12. LANTUS [Concomitant]
  13. COLACE [Concomitant]
     Dosage: DRUG:COLACE CAPS.

REACTIONS (5)
  - ABDOMINAL PAIN [None]
  - HEPATIC ARTERY THROMBOSIS [None]
  - INTRA-ABDOMINAL HAEMORRHAGE [None]
  - PYREXIA [None]
  - WOUND INFECTION [None]
